FAERS Safety Report 17187729 (Version 2)
Quarter: 2020Q1

REPORT INFORMATION
  Report Type: Spontaneous
  Country: ES (occurrence: ES)
  Receive Date: 20191221
  Receipt Date: 20200121
  Transmission Date: 20200409
  Serious: Yes (Other)
  Sender: FDA-Public Use
  Company Number: ES-AUROBINDO-AUR-APL-2018-046588

PATIENT
  Age: 68 Year
  Sex: Male
  Weight: 64 kg

DRUGS (38)
  1. FENTANYL TRANSDERMAL SYSTEM [Suspect]
     Active Substance: FENTANYL
     Indication: CHEST PAIN
  2. TRAMADOL-PARACETAMOL TABLETS [Suspect]
     Active Substance: ACETAMINOPHEN\TRAMADOL
     Indication: CHEST PAIN
  3. ACETAMINOPHEN. [Concomitant]
     Active Substance: ACETAMINOPHEN
     Indication: ARTHRALGIA
  4. METAMIZOLE [Concomitant]
     Active Substance: METAMIZOLE
     Indication: BREAKTHROUGH PAIN
     Dosage: 575 MILLIGRAM, 3 TIMES A DAY, (1725 MILLIGRAM)
     Route: 065
  5. FENTANYL TRANSDERMAL SYSTEM [Suspect]
     Active Substance: FENTANYL
     Indication: BREAKTHROUGH PAIN
     Dosage: 100 MICROGRAM (3-4)
     Route: 062
  6. CARBOPLATIN. [Concomitant]
     Active Substance: CARBOPLATIN
     Indication: SQUAMOUS CELL CARCINOMA
  7. METAMIZOLE [Concomitant]
     Active Substance: METAMIZOLE
     Indication: CONSTIPATION
  8. PARACETAMOL [Concomitant]
     Active Substance: ACETAMINOPHEN
     Indication: ARTHRALGIA
     Dosage: UNKNOWN
     Route: 065
  9. PREDNISONE. [Concomitant]
     Active Substance: PREDNISONE
     Indication: PRODUCT USED FOR UNKNOWN INDICATION
     Dosage: 10 MILLIGRAM, ONCE A DAY
     Route: 065
  10. FENTANYL TRANSDERMAL SYSTEM [Suspect]
     Active Substance: FENTANYL
     Indication: OROPHARYNGEAL PAIN
     Dosage: 25 MICROGRAM
     Route: 062
  11. MORPHINE [Suspect]
     Active Substance: MORPHINE
     Indication: PAIN
     Dosage: 130 MILLIGRAM, TWO TIMES A DAY (EXTENDED-RELEASE)
     Route: 048
  12. FENTANYL. [Suspect]
     Active Substance: FENTANYL
     Indication: OROPHARYNGEAL PAIN
     Dosage: 100 MICROGRAM (3?4)
     Route: 062
  13. OMEPRAZOLE. [Concomitant]
     Active Substance: OMEPRAZOLE
     Indication: PRODUCT USED FOR UNKNOWN INDICATION
     Dosage: 20 MILLIGRAM, ONCE A DAY, ON A DAILY BASIS
     Route: 065
  14. FENTANYL TRANSDERMAL SYSTEM [Suspect]
     Active Substance: FENTANYL
     Indication: CANCER PAIN
     Dosage: 100 MICROGRAM, ADDED TO THE TREATMENT AFTER 15 DAYS OF INITIAL PRESENTATION
  15. FENTANYL TRANSDERMAL SYSTEM [Suspect]
     Active Substance: FENTANYL
     Indication: ANALGESIC THERAPY
     Dosage: 75 MICROGRAM
     Route: 062
  16. TRAMADOL-PARACETAMOL TABLETS [Suspect]
     Active Substance: ACETAMINOPHEN\TRAMADOL
     Indication: CANCER PAIN
     Dosage: UNKNOWN
     Route: 065
  17. FENTANYL. [Suspect]
     Active Substance: FENTANYL
     Indication: ANALGESIC THERAPY
  18. FENTANYL. [Suspect]
     Active Substance: FENTANYL
     Indication: CANCER PAIN
  19. LACTULOSE. [Suspect]
     Active Substance: LACTULOSE
     Indication: CONSTIPATION
     Dosage: 2 TABLESPOONS OF LACTULOSE PER DAY
     Route: 065
  20. MORPHINE [Suspect]
     Active Substance: MORPHINE
     Indication: CANCER PAIN
  21. PARACETAMOL [Concomitant]
     Active Substance: ACETAMINOPHEN
     Indication: ANALGESIC THERAPY
  22. FENTANYL. [Suspect]
     Active Substance: FENTANYL
     Indication: BREAKTHROUGH PAIN
     Dosage: 100 MICROGRAM (3?4)
  23. FENTANYL. [Suspect]
     Active Substance: FENTANYL
     Indication: CHEST PAIN
  24. NALOXEGOL [Suspect]
     Active Substance: NALOXEGOL
     Indication: CONSTIPATION
     Dosage: 25 MILLIGRAM, ONCE A DAY
     Route: 048
  25. CARBOPLATIN. [Concomitant]
     Active Substance: CARBOPLATIN
     Indication: LUNG CANCER METASTATIC
  26. GEMCITABINE. [Concomitant]
     Active Substance: GEMCITABINE
     Indication: LUNG SQUAMOUS CELL CARCINOMA STAGE IV
     Dosage: UNK, CYCLICAL,  IN CYCLES OF 21 DAYS
     Route: 065
  27. GEMCITABINE. [Concomitant]
     Active Substance: GEMCITABINE
     Indication: LUNG CANCER METASTATIC
  28. HYDROCHLOROTHIAZIDE. [Concomitant]
     Active Substance: HYDROCHLOROTHIAZIDE
     Indication: HYPERTENSION
     Dosage: UNK, FOR 11 YEARS
     Route: 065
  29. METAMIZOLE [Concomitant]
     Active Substance: METAMIZOLE
     Indication: CANCER PAIN
  30. PARACETAMOL [Concomitant]
     Active Substance: ACETAMINOPHEN
     Indication: PAIN
  31. PARACETAMOL [Concomitant]
     Active Substance: ACETAMINOPHEN
     Indication: CHEST PAIN
  32. FENTANYL. [Suspect]
     Active Substance: FENTANYL
     Indication: PAIN
  33. CARBOPLATIN. [Concomitant]
     Active Substance: CARBOPLATIN
     Indication: LUNG SQUAMOUS CELL CARCINOMA STAGE IV
     Dosage: UNK, CYCLICAL, IN CYCLES OF 21 DAYS
     Route: 065
  34. GEMCITABINE. [Concomitant]
     Active Substance: GEMCITABINE
     Indication: SQUAMOUS CELL CARCINOMA
  35. OMEPRAZOLE. [Concomitant]
     Active Substance: OMEPRAZOLE
     Dosage: 10 MILLIGRAM
     Route: 065
  36. FENTANYL TRANSDERMAL SYSTEM [Suspect]
     Active Substance: FENTANYL
     Indication: PAIN
     Dosage: UNK, WITH INCREASED DOSAGE
     Route: 065
  37. ACETAMINOPHEN. [Concomitant]
     Active Substance: ACETAMINOPHEN
     Indication: CHEST PAIN
     Dosage: UNK
     Route: 065
  38. SIMVASTATIN. [Concomitant]
     Active Substance: SIMVASTATIN
     Indication: DYSLIPIDAEMIA
     Dosage: UNKNOWN
     Route: 065

REACTIONS (11)
  - Product use issue [Recovered/Resolved]
  - Drug ineffective [Unknown]
  - Abdominal pain [Recovering/Resolving]
  - Aerophagia [Recovered/Resolved]
  - Faeces hard [Recovered/Resolved]
  - Dyschezia [Recovering/Resolving]
  - Constipation [Recovered/Resolved]
  - Diarrhoea [Not Recovered/Not Resolved]
  - Proctalgia [Recovered/Resolved]
  - Pain [Not Recovered/Not Resolved]
  - Bowel movement irregularity [Recovered/Resolved]
